FAERS Safety Report 8550029-7 (Version None)
Quarter: 2012Q3

REPORT INFORMATION
  Report Type: 
  Country: None (occurrence: None)
  Receive Date: 20120730
  Receipt Date: 20120720
  Transmission Date: 20120928
  Serious: Yes (Other)
  Sender: FDA-Public Use
  Company Number: JP-VERTEX PHARMACEUTICALS INC.-AE-2012-009104

PATIENT
  Age: 70 Year
  Sex: Male

DRUGS (9)
  1. TELAVIC (TELAPREVIR) [Suspect]
     Indication: HEPATITIS C
     Route: 048
     Dates: start: 20120309, end: 20120530
  2. RIBAVIRIN [Concomitant]
     Route: 048
     Dates: start: 20120329, end: 20120404
  3. RIBAVIRIN [Concomitant]
     Route: 048
     Dates: start: 20120510
  4. URSO 250 [Concomitant]
     Route: 048
  5. RIBAVIRIN [Concomitant]
     Route: 048
     Dates: start: 20120405, end: 20120418
  6. RIBAVIRIN [Concomitant]
     Indication: HEPATITIS C
     Route: 048
     Dates: start: 20120309, end: 20120328
  7. RIBAVIRIN [Concomitant]
     Route: 048
     Dates: start: 20120419
  8. RIBAVIRIN [Concomitant]
     Route: 048
     Dates: start: 20120502, end: 20120509
  9. PEGINTERFERON ALFA-2B [Concomitant]
     Indication: HEPATITIS C
     Route: 058
     Dates: start: 20120309

REACTIONS (1)
  - RETINAL HAEMORRHAGE [None]
